FAERS Safety Report 15041870 (Version 1)
Quarter: 2018Q2

REPORT INFORMATION
  Report Type: Report from Study
  Country: ES (occurrence: ES)
  Receive Date: 20180621
  Receipt Date: 20180621
  Transmission Date: 20180711
  Serious: Yes (Hospitalization)
  Sender: FDA-Public Use
  Company Number: ES-ROCHE-2141049

PATIENT
  Age: 62 Year
  Sex: Male
  Weight: 84.2 kg

DRUGS (2)
  1. ATEZOLIZUMAB. [Suspect]
     Active Substance: ATEZOLIZUMAB
     Indication: METASTATIC NEOPLASM
     Dosage: DOSES OF 800 MG EVERY THREE WEEK OR 1200 MG.?DATE OF LAST PRIOR TO SERIOUS ADVERSE EVENT(SAE) ON 04/
     Route: 042
     Dates: start: 20180604
  2. RO 6895882 (CEA-IL2V) [Suspect]
     Active Substance: INVESTIGATIONAL PRODUCT
     Indication: METASTATIC NEOPLASM
     Dosage: DATE OF LAST PRIOR TO SERIOUS ADVERSE EVENT(SAE) ON 11/JUN/2018?STARTING DOSE OF 6 MILLIGRAMS (MG) A
     Route: 042
     Dates: start: 20180604

REACTIONS (1)
  - Small intestinal obstruction [Recovering/Resolving]

NARRATIVE: CASE EVENT DATE: 20180614
